FAERS Safety Report 10128872 (Version 2)
Quarter: 2014Q2

REPORT INFORMATION
  Report Type: Report from Study
  Country: CA (occurrence: CA)
  Receive Date: 20140428
  Receipt Date: 20140520
  Transmission Date: 20141212
  Serious: Yes (Hospitalization)
  Sender: FDA-Public Use
  Company Number: CA-CELGENEUS-028-C4047-14043832

PATIENT
  Age: 50 Year
  Sex: Female
  Weight: 69 kg

DRUGS (12)
  1. CC-4047 [Suspect]
     Indication: PLASMA CELL MYELOMA
     Dosage: 4 MILLIGRAM
     Route: 048
     Dates: start: 20140314
  2. CC-4047 [Suspect]
     Dosage: 4 MILLIGRAM
     Route: 048
     Dates: start: 20140411, end: 20140416
  3. DEXAMETHASONE [Suspect]
     Indication: PLASMA CELL MYELOMA
     Dosage: 40 MILLIGRAM
     Route: 065
     Dates: start: 20140314
  4. DEXAMETHASONE [Suspect]
     Dosage: 40 MILLIGRAM
     Route: 065
     Dates: start: 20140411
  5. ASPIRIN [Concomitant]
     Indication: THROMBOSIS PROPHYLAXIS
     Dosage: 81 MILLIGRAM
     Route: 048
     Dates: start: 20140314
  6. ASPIRIN [Concomitant]
     Dosage: 80 MILLIGRAM
     Route: 048
     Dates: start: 20140325
  7. PAMIDRONATE [Concomitant]
     Indication: BONE DISORDER
     Route: 041
     Dates: start: 20090407
  8. EURO-DOCUSATE [Concomitant]
     Indication: CONSTIPATION PROPHYLAXIS
     Dosage: 200 MILLIGRAM
     Route: 048
     Dates: start: 20090616
  9. EURO-SENNA [Concomitant]
     Indication: CONSTIPATION PROPHYLAXIS
     Dosage: 34.4 MILLIGRAM
     Route: 048
     Dates: start: 20101209
  10. LORAZEPAM [Concomitant]
     Indication: ANXIETY
     Dosage: 2 MILLIGRAM
     Route: 048
     Dates: start: 20140217
  11. HYDROMORPHONE [Concomitant]
     Indication: PAIN
     Route: 048
     Dates: start: 20090505
  12. ACETAMINOPHEN [Concomitant]
     Indication: INFLUENZA
     Route: 048
     Dates: start: 20140417

REACTIONS (1)
  - Influenza [Recovered/Resolved]
